FAERS Safety Report 9394435 (Version 1)
Quarter: 2013Q3

REPORT INFORMATION
  Report Type: Spontaneous
  Country: US (occurrence: US)
  Receive Date: 20130711
  Receipt Date: 20130711
  Transmission Date: 20140515
  Serious: No
  Sender: FDA-Public Use
  Company Number: US-PFIZER INC-2013200281

PATIENT
  Sex: Male

DRUGS (1)
  1. TIKOSYN [Suspect]
     Dosage: 6 DF, UNK

REACTIONS (3)
  - Dizziness [Unknown]
  - Heart rate decreased [Unknown]
  - Mental disorder [Unknown]
